FAERS Safety Report 8485463-7 (Version None)
Quarter: 2012Q3

REPORT INFORMATION
  Report Type: 
  Country: None (occurrence: None)
  Receive Date: 20120703
  Receipt Date: 20120629
  Transmission Date: 20120928
  Serious: Yes (Death)
  Sender: FDA-Public Use
  Company Number: CN-B.I. PHARMACEUTICALS,INC./RIDGEFIELD-2012-BP-14818BP

PATIENT
  Sex: Male
  Weight: 83 kg

DRUGS (4)
  1. METOPROLOL TARTRATE [Concomitant]
     Dosage: 25 ML
     Dates: start: 19900130
  2. DIGOXIN [Concomitant]
     Dosage: 0.125 MG
     Dates: start: 20050205
  3. DABIGATRAN [Suspect]
     Indication: ATRIAL FIBRILLATION
  4. DABIGATRAN [Suspect]
     Indication: CEREBROVASCULAR ACCIDENT PROPHYLAXIS
     Route: 048
     Dates: start: 20090402, end: 20120208

REACTIONS (1)
  - GASTROINTESTINAL HAEMORRHAGE [None]
